FAERS Safety Report 11816538 (Version 2)
Quarter: 2015Q4

REPORT INFORMATION
  Report Type: Report from Study
  Country: HU (occurrence: HU)
  Receive Date: 20151210
  Receipt Date: 20151211
  Transmission Date: 20160305
  Serious: Yes (Hospitalization)
  Sender: FDA-Public Use
  Company Number: HU-AMGEN-HUNCT2015130696

PATIENT
  Age: 64 Year
  Sex: Female
  Weight: 125 kg

DRUGS (6)
  1. NEVOTENS [Concomitant]
     Dosage: 5 MG, UNK
     Route: 048
     Dates: start: 20110228
  2. EMETRON [Concomitant]
     Dosage: 8 MG, UNK
     Route: 048
     Dates: start: 20110328
  3. NOVIFORM PLUSZ [Concomitant]
     Dosage: 12.5 - 20 MG, UNK
     Route: 048
     Dates: start: 20110228
  4. DENOSUMAB [Suspect]
     Active Substance: DENOSUMAB
     Indication: BREAST CANCER
     Dosage: UNK
     Route: 058
     Dates: start: 20110426
  5. IDEOS [Concomitant]
     Active Substance: CALCIUM CARBONATE\CHOLECALCIFEROL
     Dosage: 1 UNK, UNK
     Route: 048
     Dates: start: 20110426
  6. ACC                                /00082801/ [Concomitant]
     Dosage: 1 UNK, UNK
     Route: 048
     Dates: start: 20120505

REACTIONS (1)
  - Dizziness [Recovered/Resolved]

NARRATIVE: CASE EVENT DATE: 20151002
